FAERS Safety Report 5316724-8 (Version None)
Quarter: 2007Q2

REPORT INFORMATION
  Report Type: 
  Country: None (occurrence: None)
  Receive Date: 20070504
  Receipt Date: 20070417
  Transmission Date: 20071010
  Serious: Yes (Hospitalization, Other)
  Sender: FDA-Public Use
  Company Number: AU-ELI_LILLY_AND_COMPANY-AU200611004069

PATIENT
  Age: 68 Year
  Sex: Female

DRUGS (2)
  1. EVISTA [Suspect]
     Indication: OSTEOPOROSIS
     Dosage: 60 MG, DAILY (1/D)
     Route: 048
     Dates: start: 19990101
  2. DI-GESIC [Concomitant]
     Indication: PAIN

REACTIONS (7)
  - BONE PAIN [None]
  - CHEST PAIN [None]
  - LOWER RESPIRATORY TRACT INFECTION [None]
  - OVARIAN CANCER [None]
  - OVARIAN CYST [None]
  - OVARIAN ENLARGEMENT [None]
  - POSTOPERATIVE WOUND INFECTION [None]
